FAERS Safety Report 8449509 (Version 2)
Quarter: 2012Q4

REPORT INFORMATION
  Report Type: 
  Country: FR (occurrence: FR)
  Receive Date: 20120308
  Receipt Date: 20120906
  Transmission Date: 20130627
  Serious: Yes (Death, Congenital Anomaly)
  Sender: FDA-Public Use
  Company Number: FR-ABBOTT-12P-056-0910592-00

PATIENT

DRUGS (1)
  1. DEPAKINE TABLETS [Suspect]
     Indication: MATERNAL EXPOSURE TIMING UNSPECIFIED
     Route: 064

REACTIONS (5)
  - Abortion induced [Fatal]
  - Spina bifida [Unknown]
  - Foetal exposure during pregnancy [Unknown]
  - Talipes [Unknown]
  - Cerebral ventricle dilatation [Unknown]
